FAERS Safety Report 8125141-7 (Version None)
Quarter: 2012Q1

REPORT INFORMATION
  Report Type: 
  Country: None (occurrence: None)
  Receive Date: 20120126
  Receipt Date: 20120111
  Transmission Date: 20120608
  Serious: Yes (Hospitalization)
  Sender: FDA-Public Use
  Company Number: 11-3188

PATIENT
  Age: 4 Decade
  Sex: Male

DRUGS (2)
  1. XEOMIN [Suspect]
     Indication: SCROTAL OPERATION
     Dosage: 50 IU EACH SIDE (100 IU, 1 IN 1 TOTAL) INTRAMUSCULAR
     Route: 030
     Dates: start: 20111206, end: 20111206
  2. XEOMIN [Suspect]
     Indication: PENIS DISORDER
     Dosage: 50 IU EACH SIDE (100 IU, 1 IN 1 TOTAL) INTRAMUSCULAR
     Route: 030
     Dates: start: 20111206, end: 20111206

REACTIONS (3)
  - INJECTION SITE INFECTION [None]
  - INJECTION SITE PAIN [None]
  - INJECTION SITE NECROSIS [None]
